FAERS Safety Report 7812286-1 (Version None)
Quarter: 2011Q4

REPORT INFORMATION
  Report Type: 
  Country: None (occurrence: None)
  Receive Date: 20111013
  Receipt Date: 20111004
  Transmission Date: 20120403
  Serious: Yes (Other)
  Sender: FDA-Public Use
  Company Number: US-BAYER-201037467NA

PATIENT
  Age: 30 Year
  Sex: Female

DRUGS (14)
  1. YAZ [Suspect]
     Indication: ORAL CONTRACEPTION
     Dosage: UNK UNK, UNK
     Route: 048
     Dates: start: 20071009, end: 20090801
  2. WELLBUTRIN [Concomitant]
     Dosage: 200 MG, UNK
     Route: 048
     Dates: start: 20070830, end: 20080625
  3. METOCLOPRAMIDE [Concomitant]
     Dosage: 10 MG, UNK
     Route: 048
     Dates: start: 20071012
  4. MORPHINE [Concomitant]
     Dosage: 2 MG, UNK
     Route: 042
     Dates: start: 20071012
  5. ZOLOFT [Concomitant]
     Dosage: 50 MG, UNK
     Route: 048
     Dates: start: 20070608, end: 20080625
  6. MAGNESIUM HYDROXIDE TAB [Concomitant]
     Dosage: UNK
     Route: 048
     Dates: start: 20071012
  7. PERCOCET [Concomitant]
     Indication: PAIN
     Dosage: UNK UNK, PRN
  8. TORADOL [Concomitant]
     Dosage: 30 MG, UNK
     Route: 042
     Dates: start: 20071012
  9. MULTI-VITAMIN [Concomitant]
  10. HYDROCODONE BITARTRATE [Concomitant]
     Dosage: UNK
     Route: 048
     Dates: start: 20071012, end: 20080220
  11. NAPROXEN SODIUM AND PSEUDOEPHEDRINE HYDROCHLORIDE [Concomitant]
     Dosage: 500 MG, UNK
     Route: 048
     Dates: start: 20071012
  12. YASMIN [Suspect]
     Indication: ORAL CONTRACEPTION
     Dosage: UNK UNK, UNK
     Route: 048
     Dates: start: 20061129, end: 20071008
  13. REGLAN [Concomitant]
     Dosage: 10 MG, UNK
     Route: 042
     Dates: start: 20071012
  14. BICARBONAT [Concomitant]
     Dosage: UNK
     Route: 048
     Dates: start: 20071012

REACTIONS (3)
  - CHOLECYSTECTOMY [None]
  - PAIN [None]
  - CHOLECYSTITIS CHRONIC [None]
